FAERS Safety Report 6445652-X (Version None)
Quarter: 2009Q4

REPORT INFORMATION
  Report Type: 
  Country: None (occurrence: None)
  Receive Date: 20091118
  Receipt Date: 20091118
  Transmission Date: 20100525
  Serious: Yes (Other)
  Sender: FDA-Public Use
  Company Number: None

PATIENT
  Age: 67 Year
  Sex: Male
  Weight: 65.9 kg

DRUGS (1)
  1. VENTOLIN HFA [Suspect]
     Indication: ASTHMA
     Dosage: 2 PUFFS 4 X DAY INHALE
     Dates: start: 20090820

REACTIONS (6)
  - DRUG EFFECT DECREASED [None]
  - HEART RATE INCREASED [None]
  - HYPERHIDROSIS [None]
  - MOBILITY DECREASED [None]
  - PANIC ATTACK [None]
  - SYNCOPE [None]
